FAERS Safety Report 9579927 (Version 1)
Quarter: 2013Q3

REPORT INFORMATION
  Report Type: Spontaneous
  Country: US (occurrence: None)
  Receive Date: 20130916
  Receipt Date: 20130916
  Transmission Date: 20140515
  Serious: Yes (Other)
  Sender: FDA-Public Use
  Company Number: JPI-P-025628

PATIENT
  Age: 54 Year
  Sex: Female

DRUGS (7)
  1. XYREM (500 MILLIGRAM/MILLILITERS, SOLUTION) (SODIUM OXYBATE) [Suspect]
     Indication: NARCOLEPSY
     Route: 048
     Dates: start: 20081211
  2. XYREM (500 MILLIGRAM/MILLILITERS, SOLUTION) (SODIUM OXYBATE) [Suspect]
     Indication: SOMNOLENCE
     Route: 048
     Dates: start: 20081211
  3. AMPHETAMINE, DEXTROAMPHETAMINE MIXED SALTS [Concomitant]
  4. DULOXETINE HYDROCHLORIDE [Concomitant]
  5. GABAPENTIN [Concomitant]
  6. MELOXICAM [Concomitant]
  7. CORTISONE [Concomitant]

REACTIONS (6)
  - Arthritis [None]
  - Arthralgia [None]
  - Condition aggravated [None]
  - Blood pressure increased [None]
  - Cataract [None]
  - Headache [None]
